FAERS Safety Report 17443505 (Version 1)
Quarter: 2020Q1

REPORT INFORMATION
  Report Type: Spontaneous
  Country: US (occurrence: US)
  Receive Date: 20200221
  Receipt Date: 20200221
  Transmission Date: 20200409
  Serious: No
  Sender: FDA-Public Use
  Company Number: US-009507513-2002USA004295

PATIENT
  Age: 63 Year
  Sex: Male

DRUGS (12)
  1. CARVEDILOL. [Concomitant]
     Active Substance: CARVEDILOL
     Dosage: 25 MG TWICE A DAY
  2. COZAAR [Concomitant]
     Active Substance: LOSARTAN POTASSIUM
     Dosage: 100 MG DAILY
     Route: 048
  3. ALPRAZOLAM. [Concomitant]
     Active Substance: ALPRAZOLAM
     Dosage: 2 MG TWICE A DAY
  4. BUPROPION. [Concomitant]
     Active Substance: BUPROPION
     Dosage: 150 MG TWICE A DAY
  5. CALCITRIOL. [Concomitant]
     Active Substance: CALCITRIOL
     Dosage: 0.25 MICROGRAM DAILY
  6. CUBICIN [Suspect]
     Active Substance: DAPTOMYCIN
     Indication: CELLULITIS
  7. AZTREONAM. [Concomitant]
     Active Substance: AZTREONAM
     Indication: PERITONITIS
     Route: 042
  8. FUROSEMIDE. [Concomitant]
     Active Substance: FUROSEMIDE
     Dosage: 80 MG DAILY
  9. ZOCOR [Concomitant]
     Active Substance: SIMVASTATIN
     Dosage: 80 MG DAILY
     Route: 048
  10. WARFARIN [Concomitant]
     Active Substance: WARFARIN
     Dosage: 3 MG DAILY
  11. CUBICIN [Suspect]
     Active Substance: DAPTOMYCIN
     Indication: PERITONITIS
     Dosage: UNK
     Route: 042
  12. AZTREONAM. [Concomitant]
     Active Substance: AZTREONAM
     Indication: CELLULITIS

REACTIONS (1)
  - Product use in unapproved indication [Unknown]
